FAERS Safety Report 8111922-2 (Version None)
Quarter: 2012Q1

REPORT INFORMATION
  Report Type: 
  Country: None (occurrence: None)
  Receive Date: 20120131
  Receipt Date: 20120126
  Transmission Date: 20120608
  Serious: Yes (Hospitalization, Other)
  Sender: FDA-Public Use
  Company Number: DAV-AE-MTX-12-07

PATIENT
  Age: 15 Year
  Sex: Male

DRUGS (6)
  1. METHOTREXATE [Suspect]
     Indication: BONE SARCOMA
     Dosage: INTRAVENOUSLY
     Route: 042
  2. HYDROXYZINE [Concomitant]
  3. MONTELUKAST [Concomitant]
  4. DIPHENHYDRAMINE HCL [Concomitant]
  5. CERTRIZINE [Concomitant]
  6. RANITIDINE [Concomitant]

REACTIONS (2)
  - URTICARIA [None]
  - WHEEZING [None]
